FAERS Safety Report 10989130 (Version 2)
Quarter: 2017Q3

REPORT INFORMATION
  Report Type: Spontaneous
  Country: CA (occurrence: CA)
  Receive Date: 20150406
  Receipt Date: 20170912
  Transmission Date: 20171127
  Serious: Yes (Hospitalization, Other)
  Sender: FDA-Public Use
  Company Number: CA-UCBSA-2014014541

PATIENT
  Age: 78 Year
  Sex: Male

DRUGS (3)
  1. XYREM [Suspect]
     Active Substance: SODIUM OXYBATE
     Dosage: 3.75 G, 2X/DAY (BID)
     Route: 048
     Dates: start: 20081015
  2. XYREM [Suspect]
     Active Substance: SODIUM OXYBATE
     Indication: NARCOLEPSY
     Dosage: 2.25 G, 2X/DAY (BID) (500 MG/ML)
     Route: 048
     Dates: start: 20080527, end: 2008
  3. XYREM [Suspect]
     Active Substance: SODIUM OXYBATE
     Dosage: 3.75 G, ONCE DAILY (QD)
     Route: 048
     Dates: start: 20140828

REACTIONS (7)
  - Malaise [Unknown]
  - Aortic aneurysm [Recovered/Resolved]
  - Inappropriate schedule of drug administration [Unknown]
  - Atrial fibrillation [Not Recovered/Not Resolved]
  - Embolism [Unknown]
  - Angina pectoris [Unknown]
  - Chronic obstructive pulmonary disease [Unknown]

NARRATIVE: CASE EVENT DATE: 201408
